FAERS Safety Report 24104472 (Version 4)
Quarter: 2024Q4

REPORT INFORMATION
  Report Type: Spontaneous
  Country: US (occurrence: US)
  Receive Date: 20240717
  Receipt Date: 20241003
  Transmission Date: 20250114
  Serious: Yes (Death)
  Sender: AMERICAN REGENT
  Company Number: US-AMERICAN REGENT INC-2024002718

PATIENT
  Age: 63 Year
  Sex: Female
  Weight: 45.5 kg

DRUGS (3)
  1. VENOFER [Suspect]
     Active Substance: IRON SUCROSE
     Indication: Nephrogenic anaemia
     Dosage: PREVIOUS EXPOSURE
     Route: 042
  2. VENOFER [Suspect]
     Active Substance: IRON SUCROSE
     Dosage: 100 MILLIGRAM EVERY DIALYSIS TREATMENT (100 MG), ROUTE IV PUSH
     Route: 040
     Dates: start: 20240628, end: 20240628
  3. MIRCERA [Suspect]
     Active Substance: METHOXY POLYETHYLENE GLYCOL-EPOETIN BETA
     Indication: Anaemia
     Dosage: 75 MICROGRAM, 1 IN 2 WEEKS
     Dates: start: 20240628, end: 20240628

REACTIONS (2)
  - Cardio-respiratory arrest [Fatal]
  - Pruritus [Fatal]

NARRATIVE: CASE EVENT DATE: 20240628
